FAERS Safety Report 6408831-3 (Version None)
Quarter: 2009Q4

REPORT INFORMATION
  Report Type: 
  Country: None (occurrence: None)
  Receive Date: 20091019
  Receipt Date: 20091012
  Transmission Date: 20100525
  Serious: Yes (Life-Threatening, Hospitalization, Other)
  Sender: FDA-Public Use
  Company Number: 230018M09FRA

PATIENT
  Age: 54 Year
  Sex: Female

DRUGS (6)
  1. REBIF [Suspect]
     Indication: MULTIPLE SCLEROSIS
     Dosage: 44 MCG, 3 IN 1 WEEKS, SUBCUTANEOUS
     Route: 058
     Dates: start: 20040101, end: 20090420
  2. PAROXETINE HYDROCHLORIDE [Concomitant]
  3. MINIRIN [Concomitant]
  4. ACETAMINOPHEN [Concomitant]
  5. SEGLOR (DIHYDROERGOTAMINE MESILATE) [Concomitant]
  6. CERIS (TROSPIUM CHLORIDE) (TROSPIUM CHLORIDE) [Concomitant]

REACTIONS (7)
  - ASTHENIA [None]
  - EPISTAXIS [None]
  - GINGIVAL BLEEDING [None]
  - INFLAMMATION [None]
  - MARROW HYPERPLASIA [None]
  - PYELONEPHRITIS ACUTE [None]
  - THROMBOCYTOPENIA [None]
